FAERS Safety Report 8179754-7 (Version None)
Quarter: 2012Q1

REPORT INFORMATION
  Report Type: 
  Country: None (occurrence: None)
  Receive Date: 20120302
  Receipt Date: 20120227
  Transmission Date: 20120608
  Serious: Yes (Life-Threatening, Hospitalization)
  Sender: FDA-Public Use
  Company Number: JP-CELGENEUS-087-21880-11093681

PATIENT
  Sex: Female

DRUGS (7)
  1. PL GRANULE [Concomitant]
     Dosage: 3 GRAM
     Route: 048
     Dates: start: 20101117, end: 20101120
  2. REVLIMID [Suspect]
     Dosage: 10 MILLIGRAM
     Route: 048
     Dates: start: 20101112, end: 20101202
  3. LEVOFLOXACIN [Concomitant]
     Dosage: 500 MILLIGRAM
     Route: 048
     Dates: start: 20101117, end: 20101120
  4. REVLIMID [Suspect]
     Dosage: 5 MILLIGRAM
     Route: 048
     Dates: start: 20110408, end: 20110414
  5. PL GRANULE [Concomitant]
     Indication: DEEP VEIN THROMBOSIS
  6. PL GRANULE [Concomitant]
     Indication: PULMONARY INFARCTION
  7. REVLIMID [Suspect]
     Dosage: 5 MILLIGRAM
     Route: 048
     Dates: start: 20110325, end: 20110331

REACTIONS (4)
  - HAEMORRHAGIC CEREBRAL INFARCTION [None]
  - PULMONARY INFARCTION [None]
  - PLATELET COUNT DECREASED [None]
  - DEEP VEIN THROMBOSIS [None]
